FAERS Safety Report 25616230 (Version 1)
Quarter: 2025Q3

REPORT INFORMATION
  Report Type: Report from Study
  Country: US (occurrence: US)
  Receive Date: 20250729
  Receipt Date: 20250729
  Transmission Date: 20251020
  Serious: Yes (Other)
  Sender: AMGEN
  Company Number: US-AMGEN-USASL2025147117

PATIENT
  Age: 46 Year
  Sex: Female

DRUGS (7)
  1. ENBREL [Suspect]
     Active Substance: ETANERCEPT
     Indication: Psoriasis
     Route: 065
  2. TALTZ [Concomitant]
     Active Substance: IXEKIZUMAB
     Route: 065
  3. HUMIRA [Concomitant]
     Active Substance: ADALIMUMAB
     Route: 065
  4. STELARA [Concomitant]
     Active Substance: USTEKINUMAB
     Route: 065
  5. TREMFYA [Concomitant]
     Active Substance: GUSELKUMAB
     Route: 065
  6. COSENTYX [Concomitant]
     Active Substance: SECUKINUMAB
     Route: 065
  7. SKYRIZI [Concomitant]
     Active Substance: RISANKIZUMAB-RZAA
     Route: 065

REACTIONS (6)
  - Immunosuppression [Unknown]
  - Herpes simplex viraemia [Unknown]
  - Duodenal operation [Unknown]
  - Basal cell carcinoma [Unknown]
  - Treatment failure [Unknown]
  - Hepatic steatosis [Unknown]
